FAERS Safety Report 14619894 (Version 1)
Quarter: 2018Q1

REPORT INFORMATION
  Report Type: Spontaneous
  Country: GR (occurrence: GR)
  Receive Date: 20180309
  Receipt Date: 20180309
  Transmission Date: 20180509
  Serious: Yes (Other)
  Sender: FDA-Public Use
  Company Number: GR-PFIZER INC-2018094339

PATIENT
  Age: 69 Year
  Sex: Female

DRUGS (6)
  1. PROCORALAN [Concomitant]
     Active Substance: IVABRADINE
     Dosage: 5 MG, DAILY
  2. TAVOR (LORAZEPAM) [Suspect]
     Active Substance: LORAZEPAM
     Indication: DEPRESSION
     Dosage: UNK (^HUGE DOSES^ UP TO 12 MG DAILY)
  3. SEROQUEL [Suspect]
     Active Substance: QUETIAPINE FUMARATE
     Dosage: 75 MG, DAILY
  4. TAVOR (LORAZEPAM) [Suspect]
     Active Substance: LORAZEPAM
     Dosage: 1.5 MG, 1X/DAY (BEFORE SLEEP)
     Dates: end: 20180302
  5. SEROQUEL [Suspect]
     Active Substance: QUETIAPINE FUMARATE
     Indication: DEPRESSION
     Dosage: 750 MG, DAILY
  6. THYROHORMONE [Concomitant]
     Active Substance: LEVOTHYROXINE SODIUM
     Dosage: 1 MG, DAILY (EVERY SECOND DAY 1/4 MG)

REACTIONS (20)
  - Eye disorder [Unknown]
  - H1N1 influenza [Unknown]
  - Rhinitis [Unknown]
  - Memory impairment [Unknown]
  - Fall [Unknown]
  - Dizziness [Unknown]
  - Insomnia [Not Recovered/Not Resolved]
  - Tension [Unknown]
  - Vomiting [Unknown]
  - Asthma [Unknown]
  - Weight decreased [Unknown]
  - Overdose [Unknown]
  - Sedation [Unknown]
  - Performance status decreased [Unknown]
  - Nervousness [Unknown]
  - Nasal dryness [Unknown]
  - Dry mouth [Unknown]
  - Headache [Unknown]
  - Syncope [Unknown]
  - Eating disorder [Unknown]

NARRATIVE: CASE EVENT DATE: 201711
